FAERS Safety Report 14367358 (Version 2)
Quarter: 2020Q1

REPORT INFORMATION
  Report Type: Spontaneous
  Country: FR (occurrence: FR)
  Receive Date: 20180109
  Receipt Date: 20200108
  Transmission Date: 20200409
  Serious: Yes (Life-Threatening, Hospitalization)
  Sender: FDA-Public Use
  Company Number: FR-PFIZER INC-2018008155

PATIENT
  Age: 56 Year
  Sex: Female
  Weight: 107 kg

DRUGS (8)
  1. XANAX [Suspect]
     Active Substance: ALPRAZOLAM
     Dosage: 29 MG, TOTAL
     Route: 048
     Dates: start: 20171109, end: 20171109
  2. EFFEXOR LP [Suspect]
     Active Substance: VENLAFAXINE HYDROCHLORIDE
     Dosage: 375 MG, TOTAL
     Route: 048
     Dates: start: 20171109, end: 20171109
  3. TIAPRIDAL [Suspect]
     Active Substance: TIAPRIDE HYDROCHLORIDE
     Dosage: 1000 MG, UNK
     Route: 048
     Dates: start: 20171109, end: 20171109
  4. CRESTOR [Concomitant]
     Active Substance: ROSUVASTATIN CALCIUM
     Indication: DYSLIPIDAEMIA
     Dosage: 5 MG, 1X/DAY
     Route: 048
  5. THERALENE [Suspect]
     Active Substance: TRIMEPRAZINE
     Dosage: 150 MG, TOTAL
     Route: 048
     Dates: start: 20171109, end: 20171109
  6. SERESTA [Suspect]
     Active Substance: OXAZEPAM
     Dosage: 1000 MG, TOTAL
     Route: 048
     Dates: start: 20171109, end: 20171109
  7. METFORMINE [Concomitant]
     Active Substance: METFORMIN HYDROCHLORIDE
     Indication: TYPE 2 DIABETES MELLITUS
     Dosage: 500 MG, 1X/DAY
     Route: 048
  8. HAVLANE [Concomitant]
     Active Substance: LOPRAZOLAM
     Dosage: 1 DF, 1X/DAY
     Route: 048

REACTIONS (6)
  - Hypotension [Recovered/Resolved]
  - Suicide attempt [Recovered/Resolved]
  - Overdose [Recovered/Resolved]
  - Electrocardiogram QT prolonged [Recovered/Resolved]
  - Coma [Recovered/Resolved]
  - Pneumonia [Recovered/Resolved]

NARRATIVE: CASE EVENT DATE: 20171109
